FAERS Safety Report 18297874 (Version 1)
Quarter: 2020Q3

REPORT INFORMATION
  Report Type: Spontaneous
  Country: US (occurrence: US)
  Receive Date: 20200922
  Receipt Date: 20200922
  Transmission Date: 20201103
  Serious: No
  Sender: FDA-Public Use
  Company Number: US-TEVA-2020-US-1831906

PATIENT
  Age: 59 Year
  Sex: Female

DRUGS (1)
  1. ALPRAZOLAM ACTAVIS [Suspect]
     Active Substance: ALPRAZOLAM
     Route: 065
     Dates: start: 1979

REACTIONS (2)
  - Drug ineffective [Unknown]
  - Withdrawal syndrome [Unknown]
